FAERS Safety Report 7973874-5 (Version None)
Quarter: 2011Q4

REPORT INFORMATION
  Report Type: 
  Country: None (occurrence: None)
  Receive Date: 20111213
  Receipt Date: 20111130
  Transmission Date: 20120403
  Serious: Yes (Life-Threatening, Hospitalization)
  Sender: FDA-Public Use
  Company Number: JP-ROCHE-664061

PATIENT
  Sex: Female
  Weight: 56 kg

DRUGS (4)
  1. TAXOTERE [Suspect]
     Indication: BREAST CANCER METASTATIC
     Route: 042
     Dates: start: 20090427, end: 20090710
  2. CYCLOPHOSPHAMIDE [Suspect]
     Indication: BREAST CANCER METASTATIC
     Route: 042
     Dates: start: 20090427, end: 20090710
  3. HERCEPTIN [Suspect]
     Indication: BREAST CANCER METASTATIC
     Route: 041
     Dates: start: 20090731, end: 20090731
  4. HERCEPTIN [Suspect]
     Route: 041
     Dates: start: 20090821, end: 20090821

REACTIONS (9)
  - HEPATIC FUNCTION ABNORMAL [None]
  - INFUSION RELATED REACTION [None]
  - DISSEMINATED INTRAVASCULAR COAGULATION [None]
  - RENAL IMPAIRMENT [None]
  - DIARRHOEA [None]
  - LUNG DISORDER [None]
  - NOROVIRUS TEST POSITIVE [None]
  - PLATELET COUNT DECREASED [None]
  - CIRCULATORY COLLAPSE [None]
